FAERS Safety Report 15657037 (Version 1)
Quarter: 2018Q4

REPORT INFORMATION
  Report Type: Spontaneous
  Country: FR (occurrence: FR)
  Receive Date: 20181126
  Receipt Date: 20181126
  Transmission Date: 20190205
  Serious: Yes (Hospitalization, Other)
  Sender: FDA-Public Use
  Company Number: PHHY2017FR158632

PATIENT
  Age: 76 Year
  Sex: Female

DRUGS (4)
  1. CARBIMAZOLE [Suspect]
     Active Substance: CARBIMAZOLE
     Indication: HYPERTHYROIDISM
     Dosage: 20 MG, QD
     Route: 065
  2. CARBIMAZOLE [Suspect]
     Active Substance: CARBIMAZOLE
     Dosage: 40 MG, QD
     Route: 065
  3. AMIODARONE [Suspect]
     Active Substance: AMIODARONE
     Indication: PRODUCT USED FOR UNKNOWN INDICATION
     Route: 065
  4. VERAPAMIL [Concomitant]
     Active Substance: VERAPAMIL HYDROCHLORIDE
     Indication: HYPERTHYROIDISM
     Route: 065

REACTIONS (8)
  - Hepatotoxicity [Recovered/Resolved]
  - Hepatotoxicity [Unknown]
  - Drug-induced liver injury [Recovered/Resolved]
  - Jaundice [Recovered/Resolved]
  - Pruritus [Recovered/Resolved]
  - Accidental exposure to product [Unknown]
  - Abdominal pain upper [Recovered/Resolved]
  - Hyperthyroidism [Unknown]
